FAERS Safety Report 9319718 (Version 1)
Quarter: 2013Q2

REPORT INFORMATION
  Report Type: Spontaneous
  Country: US (occurrence: US)
  Receive Date: 20130530
  Receipt Date: 20130530
  Transmission Date: 20140414
  Serious: Yes (Hospitalization)
  Sender: FDA-Public Use
  Company Number: US-GLAXOSMITHKLINE-A0785090A

PATIENT
  Age: 56 Year
  Sex: Male
  Weight: 138.2 kg

DRUGS (1)
  1. AVANDIA [Suspect]
     Indication: DIABETES MELLITUS
     Dosage: 4MG TWICE PER DAY
     Route: 048
     Dates: start: 20000225, end: 200606

REACTIONS (4)
  - Myocardial infarction [Unknown]
  - Coronary artery bypass [Unknown]
  - Angina pectoris [Unknown]
  - Dyspnoea [Unknown]
